FAERS Safety Report 19670968 (Version 1)
Quarter: 2021Q3

REPORT INFORMATION
  Report Type: Other
  Country: CN (occurrence: CN)
  Receive Date: 20210806
  Receipt Date: 20210806
  Transmission Date: 20211014
  Serious: Yes (Other)
  Sender: FDA-Public Use
  Company Number: CN-GE HEALTHCARE LIFE SCIENCES-2021CSU003838

PATIENT

DRUGS (2)
  1. OMNIPAQUE [Suspect]
     Active Substance: IOHEXOL
     Indication: DIAGNOSTIC PROCEDURE
     Dosage: 80 ML, SINGLE
     Route: 042
     Dates: start: 20210726, end: 20210726
  2. OMNIPAQUE [Suspect]
     Active Substance: IOHEXOL
     Indication: THYROID NEOPLASM

REACTIONS (8)
  - Chest discomfort [Recovering/Resolving]
  - Nausea [Recovering/Resolving]
  - Cough [Recovering/Resolving]
  - Injection site rash [Recovering/Resolving]
  - Dysphonia [Recovering/Resolving]
  - Vomiting [Recovering/Resolving]
  - Oropharyngeal discomfort [Recovering/Resolving]
  - Phlebitis [Recovering/Resolving]

NARRATIVE: CASE EVENT DATE: 20210726
